FAERS Safety Report 26122946 (Version 3)
Quarter: 2025Q4

REPORT INFORMATION
  Report Type: Spontaneous
  Country: CH (occurrence: CH)
  Receive Date: 20251204
  Receipt Date: 20251209
  Transmission Date: 20260118
  Serious: Yes (Life-Threatening, Other)
  Sender: PFIZER
  Company Number: None

PATIENT
  Age: 81 Year
  Sex: Male
  Weight: 73.5 kg

DRUGS (14)
  1. ELIQUIS [Suspect]
     Active Substance: APIXABAN
     Dosage: 5MG, EVERY 12 HOURS, IN THE MORNING AND IN THE AFTERNOON
     Route: 048
     Dates: start: 20241210, end: 20251101
  2. ALDACTONE [Suspect]
     Active Substance: SPIRONOLACTONE
     Dosage: 25 MG, EVERY 24 HOURS, IN THE MORNING
     Route: 048
     Dates: start: 20241224, end: 20251101
  3. DAFALGAN [Suspect]
     Active Substance: ACETAMINOPHEN
     Dosage: UNK UNK, AS NEEDED
     Route: 048
     Dates: start: 202509, end: 20251107
  4. TORSEMIDE [Suspect]
     Active Substance: TORSEMIDE
     Dosage: 20 MG, EVERY 24 HOURS, IN THE MORING
     Route: 048
     Dates: start: 20241224, end: 20251101
  5. SODIUM PICOSULFATE [Concomitant]
     Active Substance: SODIUM PICOSULFATE
     Dosage: 10 DROPS ONCE EVERY 24 HOURS, IN THE AFTERNOON
     Dates: start: 20241224, end: 20251114
  6. CALCIUM\CHOLECALCIFEROL [Concomitant]
     Active Substance: CALCIUM\CHOLECALCIFEROL
     Dosage: 1 DF ONCE EVERY 24 HOURS, AROUND NOON
     Route: 048
     Dates: start: 202509, end: 20251114
  7. DAPAGLIFLOZIN [Concomitant]
     Active Substance: DAPAGLIFLOZIN
     Dosage: 10 MG ONCE EVERY 24 HOURS, IN THE MORNING
     Route: 048
     Dates: start: 20241224, end: 20251101
  8. ENTRESTO [Concomitant]
     Active Substance: SACUBITRIL\VALSARTAN
     Dosage: 1 DF EVERY 12 HOURS, ONE IN THE MORNING AND ONE IN THE AFTERNOON
     Route: 048
     Dates: start: 20241224, end: 20251101
  9. MAGNESIUM [Concomitant]
     Active Substance: MAGNESIUM
     Dosage: 300 MG EVERY 24 HOURS, IN THE AFTERNOON
     Route: 048
     Dates: start: 20241224, end: 20251101
  10. ANORO ELLIPTA [Concomitant]
     Active Substance: UMECLIDINIUM BROMIDE\VILANTEROL TRIFENATATE
     Dosage: 1 DF ONCE EVERY 24 HOURS, IN THE MORNING
     Route: 055
     Dates: start: 20241224, end: 20251114
  11. CHOLECALCIFEROL [Concomitant]
     Active Substance: CHOLECALCIFEROL
     Dosage: UNK
     Dates: start: 202509, end: 20251114
  12. PANTOPRAZOLE [Concomitant]
     Active Substance: PANTOPRAZOLE
     Dosage: 20 MG ONCE EVERY 24 HOURS, IN THE MORNING
     Route: 048
     Dates: start: 20241224, end: 20251114
  13. BISOPROLOL MEPHA [Concomitant]
     Dosage: 5 MG, 1X/DAY
     Route: 048
     Dates: start: 202501, end: 20251114
  14. BISOPROLOL MEPHA [Concomitant]
     Dosage: 2.5 MG, 1X/DAY
     Route: 048
     Dates: start: 202501, end: 20251114

REACTIONS (2)
  - Gastrointestinal haemorrhage [Recovering/Resolving]
  - Immune thrombocytopenia [Recovering/Resolving]

NARRATIVE: CASE EVENT DATE: 20251101
